FAERS Safety Report 9132106 (Version 1)
Quarter: 2013Q1

REPORT INFORMATION
  Report Type: Spontaneous
  Country: US (occurrence: US)
  Receive Date: 20130301
  Receipt Date: 20130301
  Transmission Date: 20140127
  Serious: Yes (Life-Threatening, Hospitalization, Other)
  Sender: FDA-Public Use
  Company Number: US-TARO-2013P1002847

PATIENT
  Age: 45 Year
  Sex: Male

DRUGS (4)
  1. WARFARIN [Suspect]
     Indication: ANTICOAGULANT THERAPY
  2. PHENYTOIN [Concomitant]
  3. DILTIAZEM [Concomitant]
  4. ALBUTEROL INHALER [Concomitant]

REACTIONS (3)
  - Acute respiratory failure [Recovered/Resolved]
  - Gangrene [Recovered/Resolved with Sequelae]
  - International normalised ratio increased [Unknown]
